FAERS Safety Report 7054372-2 (Version None)
Quarter: 2010Q4

REPORT INFORMATION
  Report Type: 
  Country: None (occurrence: None)
  Receive Date: 20101020
  Receipt Date: 20101015
  Transmission Date: 20110411
  Serious: Yes (Death)
  Sender: FDA-Public Use
  Company Number: US-GILEAD-2010-0032715

PATIENT
  Sex: Male

DRUGS (18)
  1. LETAIRIS [Suspect]
     Indication: PULMONARY ARTERIAL HYPERTENSION
     Route: 048
     Dates: start: 20100508, end: 20100603
  2. REVATIO [Concomitant]
  3. SPIRONOLACTONE [Concomitant]
  4. DIOVAN [Concomitant]
  5. PRAVACHOL [Concomitant]
  6. METOLAZONE [Concomitant]
  7. ALBUTEROL [Concomitant]
  8. SPIRIVA [Concomitant]
  9. BUMETANIDE [Concomitant]
  10. HUMALOG [Concomitant]
  11. PREVACID [Concomitant]
  12. ALLOPURINOL [Concomitant]
  13. SYNTHROID [Concomitant]
  14. ZEMPLAR [Concomitant]
  15. IRON [Concomitant]
  16. MULTI-VITAMIN [Concomitant]
  17. VITAMIN D [Concomitant]
  18. CALCIUM ACETATE [Concomitant]

REACTIONS (1)
  - RESPIRATORY FAILURE [None]
